FAERS Safety Report 8261406-6 (Version None)
Quarter: 2012Q2

REPORT INFORMATION
  Report Type: 
  Country: None (occurrence: None)
  Receive Date: 20120405
  Receipt Date: 20120327
  Transmission Date: 20120825
  Serious: Yes (Hospitalization)
  Sender: FDA-Public Use
  Company Number: US-BAYER-2011-113844

PATIENT
  Age: 37 Year
  Sex: Female
  Weight: 95 kg

DRUGS (3)
  1. YAZ [Suspect]
     Indication: PREMENSTRUAL SYNDROME
     Dosage: UNK
     Route: 048
     Dates: start: 20070401, end: 20080501
  2. LEXAPRO [Concomitant]
  3. YAZ [Suspect]

REACTIONS (4)
  - PORTAL VEIN THROMBOSIS [None]
  - INJURY [None]
  - DYSPNOEA [None]
  - EMOTIONAL DISTRESS [None]
